FAERS Safety Report 5135035-7 (Version None)
Quarter: 2006Q4

REPORT INFORMATION
  Report Type: 
  Country: None (occurrence: None)
  Receive Date: 20060831
  Receipt Date: 20060711
  Transmission Date: 20070319
  Serious: No
  Sender: FDA-Public Use
  Company Number: 2006-BP-08670PF

PATIENT
  Age: 77 Year
  Sex: Male
  Weight: 106.5 kg

DRUGS (10)
  1. SPIRIVA [Suspect]
     Indication: CHRONIC OBSTRUCTIVE PULMONARY DISEASE
     Dosage: (18 MCG),IH
     Route: 055
  2. LIPITOR [Suspect]
     Indication: BLOOD CHOLESTEROL
     Dosage: (10 MG)
  3. GLUCOTROL XL [Suspect]
     Indication: DIABETES MELLITUS
     Dosage: 10 MG (5 MG,2 IN 1 D)
  4. ACCUPRIL [Suspect]
     Indication: BLOOD PRESSURE
  5. PLAVIX [Concomitant]
  6. UNIPHYL [Concomitant]
  7. VERAPAMIL [Concomitant]
  8. ASPIRIN [Concomitant]
  9. ADVAIR DISKUS 100/50 [Concomitant]
  10. COMBIVENT (COMBIVENT /01261001/) [Concomitant]

REACTIONS (2)
  - ARTERIAL DISORDER [None]
  - DYSPNOEA [None]
